FAERS Safety Report 16352305 (Version 2)
Quarter: 2022Q4

REPORT INFORMATION
  Report Type: Report from Study
  Country: DE (occurrence: DE)
  Receive Date: 20190524
  Receipt Date: 20221209
  Transmission Date: 20230113
  Serious: Yes (Death, Life-Threatening)
  Sender: FDA-Public Use
  Company Number: DE-EMA-DD-20190508-KUMARSINGH_A-143237

PATIENT
  Age: 45 Year
  Sex: Male
  Weight: 88 kg

DRUGS (72)
  1. FUROSEMIDE [Suspect]
     Active Substance: FUROSEMIDE
     Indication: Oedema
     Route: 042
     Dates: start: 19981205, end: 19981205
  2. FUROSEMIDE [Suspect]
     Active Substance: FUROSEMIDE
     Route: 042
     Dates: start: 19981208
  3. FUROSEMIDE [Suspect]
     Active Substance: FUROSEMIDE
     Route: 042
     Dates: start: 19981013, end: 19981029
  4. FUROSEMIDE [Suspect]
     Active Substance: FUROSEMIDE
     Route: 042
     Dates: start: 19981202, end: 19981203
  5. GENTAMICIN [Suspect]
     Active Substance: GENTAMICIN
     Indication: Conjunctivitis
     Dosage: 1 DROP PER EYE TWICE DAILY
     Route: 047
     Dates: start: 19981129, end: 19981129
  6. PREDNISOLONE [Suspect]
     Active Substance: PREDNISOLONE
     Indication: Conjunctivitis
     Route: 061
     Dates: start: 19981207, end: 19990101
  7. PREDNISOLONE [Suspect]
     Active Substance: PREDNISOLONE
     Route: 061
     Dates: start: 19981204, end: 19981204
  8. TOBRAMYCIN [Suspect]
     Active Substance: TOBRAMYCIN
     Indication: Infection
     Route: 042
     Dates: start: 19981114, end: 19981119
  9. TOBRAMYCIN [Suspect]
     Active Substance: TOBRAMYCIN
     Route: 042
     Dates: start: 19981121, end: 19981121
  10. SODIUM POLYSTYRENE SULFONATE [Suspect]
     Active Substance: SODIUM POLYSTYRENE SULFONATE
     Indication: Hyperkalaemia
     Route: 048
     Dates: start: 19981129, end: 19981129
  11. CEFTAZIDIME [Suspect]
     Active Substance: CEFTAZIDIME
     Indication: Infection
     Route: 042
     Dates: start: 19981126, end: 19981205
  12. CEFTAZIDIME [Suspect]
     Active Substance: CEFTAZIDIME
     Dates: start: 19981111, end: 19981120
  13. DIMENHYDRINATE [Suspect]
     Active Substance: DIMENHYDRINATE
     Indication: Nausea
     Route: 042
     Dates: start: 19981118, end: 19981130
  14. KONAKION [Suspect]
     Active Substance: PHYTONADIONE
     Indication: Coagulopathy
     Dosage: IRREGULAR/UNKNOWN DOSING.
     Route: 042
     Dates: start: 19981123, end: 19981207
  15. KONAKION [Suspect]
     Active Substance: PHYTONADIONE
     Route: 042
     Dates: end: 19981112
  16. CIPROFLOXACIN [Suspect]
     Active Substance: CIPROFLOXACIN
     Indication: Cystitis
     Route: 042
     Dates: start: 19981130, end: 19990101
  17. DOPAMINE HYDROCHLORIDE [Suspect]
     Active Substance: DOPAMINE HYDROCHLORIDE
     Indication: Hypotension
     Route: 042
     Dates: start: 19981119, end: 19990101
  18. MIRTAZAPINE [Suspect]
     Active Substance: MIRTAZAPINE
     Indication: Depression
     Route: 048
     Dates: start: 19981203, end: 19981203
  19. MIRTAZAPINE [Suspect]
     Active Substance: MIRTAZAPINE
     Route: 048
     Dates: start: 19981126, end: 19981130
  20. CILASTATIN SODIUM\IMIPENEM [Suspect]
     Active Substance: CILASTATIN SODIUM\IMIPENEM
     Indication: Infection
     Route: 042
     Dates: start: 19981205, end: 19990101
  21. CILASTATIN SODIUM\IMIPENEM [Suspect]
     Active Substance: CILASTATIN SODIUM\IMIPENEM
     Route: 042
     Dates: start: 19981120, end: 19981128
  22. CILASTATIN SODIUM\IMIPENEM [Suspect]
     Active Substance: CILASTATIN SODIUM\IMIPENEM
     Route: 042
     Dates: start: 19981205, end: 19990101
  23. BACTRIM [Suspect]
     Active Substance: SULFAMETHOXAZOLE\TRIMETHOPRIM
     Indication: Infection
     Route: 042
     Dates: start: 19981204, end: 19981206
  24. BACTRIM [Suspect]
     Active Substance: SULFAMETHOXAZOLE\TRIMETHOPRIM
     Route: 042
     Dates: start: 19981113, end: 19981120
  25. BACTRIM [Suspect]
     Active Substance: SULFAMETHOXAZOLE\TRIMETHOPRIM
     Route: 042
     Dates: start: 19981127, end: 19981129
  26. DIFLUCAN [Suspect]
     Active Substance: FLUCONAZOLE
     Indication: Antifungal prophylaxis
     Route: 042
     Dates: end: 19981119
  27. METAMIZOLE [Suspect]
     Active Substance: METAMIZOLE
     Indication: Pain
     Dosage: IRREGULAR/UNKNOWN DOSING.
     Route: 042
     Dates: start: 19981124, end: 19981128
  28. METAMIZOLE [Suspect]
     Active Substance: METAMIZOLE
     Route: 042
     Dates: start: 19981111, end: 19981121
  29. METAMIZOLE [Suspect]
     Active Substance: METAMIZOLE
     Route: 042
     Dates: end: 19981208
  30. METAMIZOLE [Suspect]
     Active Substance: METAMIZOLE
     Dosage: 1 G
     Route: 042
     Dates: start: 19981205, end: 19981205
  31. TAVOR (LORAZEPAM) [Suspect]
     Active Substance: LORAZEPAM
     Indication: Sedation
     Route: 042
     Dates: end: 19981125
  32. METHYLPREDNISOLONE SODIUM SUCCINATE [Suspect]
     Active Substance: METHYLPREDNISOLONE SODIUM SUCCINATE
     Indication: Graft versus host disease
     Route: 042
     Dates: start: 19981121, end: 19990101
  33. GANCICLOVIR [Suspect]
     Active Substance: GANCICLOVIR
     Indication: Product used for unknown indication
     Route: 042
     Dates: start: 19981127, end: 19990101
  34. AMBISOME [Suspect]
     Active Substance: AMPHOTERICIN B
     Indication: Fungal infection
     Route: 042
     Dates: start: 19981122, end: 19990101
  35. LASIX [Suspect]
     Active Substance: FUROSEMIDE
     Indication: Oedema
     Route: 042
     Dates: start: 19981126, end: 19981126
  36. NEUPOGEN [Suspect]
     Active Substance: FILGRASTIM
     Indication: Bone marrow transplant
     Route: 042
     Dates: start: 19981127, end: 19981130
  37. SODIUM CHLORIDE [Concomitant]
     Active Substance: SODIUM CHLORIDE
     Indication: Hyponatraemia
     Route: 042
     Dates: start: 19981113
  38. MAGNESIUM [Concomitant]
     Active Substance: MAGNESIUM
     Indication: Blood magnesium decreased
     Dosage: INTERMITTENT THERAPY.
     Route: 042
     Dates: end: 19981202
  39. CYCLOSPORINE [Concomitant]
     Active Substance: CYCLOSPORINE
     Indication: Bone marrow transplant
     Route: 042
  40. NYSTATIN [Concomitant]
     Active Substance: NYSTATIN
     Indication: Candida infection
     Route: 061
     Dates: start: 19981204, end: 19981204
  41. AMPHOTERICIN B [Concomitant]
     Active Substance: AMPHOTERICIN B
     Indication: Fungal infection
     Dosage: LEVEL 1/DAY.
     Route: 042
     Dates: start: 19981117, end: 19981121
  42. POTASSIUM CHLORIDE [Concomitant]
     Active Substance: POTASSIUM CHLORIDE
     Indication: Hypokalaemia
     Dosage: INTERMITTENT THERAPY.
     Route: 042
  43. VITAMINS [Concomitant]
     Active Substance: VITAMINS
     Indication: Parenteral nutrition
     Route: 042
  44. DEXTROSE [Concomitant]
     Active Substance: DEXTROSE
     Indication: Parenteral nutrition
     Dosage: 10, 40 OR 70% SOLUTIONS.
     Route: 042
  45. MEPERIDINE [Concomitant]
     Active Substance: MEPERIDINE
     Indication: Sedation
     Dosage: INTERMITTENT THERAPY
     Route: 042
     Dates: start: 19981111, end: 19981121
  46. AMINOMIX [Concomitant]
     Indication: Parenteral nutrition
     Dosage: INTERMITTENT THERAPY.
     Route: 042
     Dates: end: 19981129
  47. INTRALIPID [Concomitant]
     Active Substance: EGG PHOSPHOLIPIDS\GLYCERIN\SOYBEAN OIL
     Indication: Parenteral nutrition
     Route: 042
  48. ACETYLCYSTEINE [Concomitant]
     Active Substance: ACETYLCYSTEINE
     Indication: Unevaluable event
     Route: 042
     Dates: start: 19981117, end: 19981119
  49. SOLU-DECORTIN H [Concomitant]
     Indication: Graft versus host disease
     Route: 042
     Dates: start: 19981119, end: 19981121
  50. OMEPRAZOLE [Concomitant]
     Active Substance: OMEPRAZOLE
     Indication: Prophylaxis
     Route: 042
     Dates: start: 19981113
  51. AQUAPHOR [Concomitant]
     Active Substance: PETROLATUM
     Indication: Oedema
     Route: 048
     Dates: start: 19981120, end: 19981120
  52. MAGNESIUM ASPARTATE\POTASSIUM ASPARTATE [Concomitant]
     Active Substance: MAGNESIUM ASPARTATE\POTASSIUM ASPARTATE
     Indication: Electrolyte substitution therapy
     Route: 042
  53. PENTAGLOBIN [Concomitant]
     Active Substance: HUMAN IMMUNOGLOBULIN G
     Indication: Bone marrow transplant
     Dosage: GIVEN ON 15, 19, 26 NOV ONLY
     Route: 042
     Dates: start: 19981115, end: 19981126
  54. AMINO ACIDS, SOURCE UNSPECIFIED [Concomitant]
     Active Substance: AMINO ACIDS, SOURCE UNSPECIFIED
     Indication: Parenteral nutrition
     Dosage: INTERMITTENT THERAPY.
     Route: 042
     Dates: end: 19981128
  55. CALCIUM [Concomitant]
     Active Substance: CALCIUM
     Indication: Blood calcium decreased
     Route: 042
  56. MORPHINE [Concomitant]
     Active Substance: MORPHINE
     Indication: Sedation
     Route: 042
     Dates: start: 19981111, end: 19981123
  57. CLEMASTINE FUMARATE [Concomitant]
     Active Substance: CLEMASTINE FUMARATE
     Indication: Graft versus host disease
     Route: 042
     Dates: start: 19981118, end: 19981121
  58. ACTRAPID [Concomitant]
     Active Substance: INSULIN HUMAN
     Indication: Diabetes mellitus
     Route: 042
     Dates: start: 19981115, end: 19981207
  59. AMPHO-MORONAL LUTSCHTABLETTEN [Concomitant]
     Indication: Antifungal prophylaxis
     Route: 048
     Dates: end: 19981110
  60. FAMOTIDINE [Concomitant]
     Active Substance: FAMOTIDINE
     Indication: Prophylaxis
     Route: 042
     Dates: end: 19981110
  61. LENOGRASTIM [Concomitant]
     Active Substance: LENOGRASTIM
     Indication: Bone marrow transplant
     Route: 042
     Dates: end: 19981128
  62. METHOTREXATE SODIUM [Concomitant]
     Active Substance: METHOTREXATE SODIUM
     Indication: Bone marrow transplant
     Route: 042
     Dates: start: 19981111, end: 19981111
  63. SODIUM BICARBONATE [Concomitant]
     Active Substance: SODIUM BICARBONATE
     Indication: Acidosis
     Dosage: INTERMITTENT THERAPY.
     Route: 042
     Dates: start: 19981201, end: 19981206
  64. AMPHO-MORONAL [Concomitant]
     Active Substance: AMPHOTERICIN B
     Indication: Antifungal prophylaxis
     Route: 048
     Dates: start: 19981111
  65. AMPHO-MORONAL [Concomitant]
     Active Substance: AMPHOTERICIN B
     Route: 055
     Dates: end: 19981122
  66. VITAMINS [Concomitant]
     Active Substance: VITAMINS
     Indication: Nutritional supplementation
     Route: 042
  67. CLONT [Concomitant]
     Indication: Infection
     Route: 042
  68. ALPROSTADIL ALFADEX [Concomitant]
     Active Substance: ALPROSTADIL ALFADEX
     Indication: Cardiovascular disorder
     Route: 042
     Dates: start: 19981111, end: 19981119
  69. AMINO ACIDS, SOURCE UNSPECIFIED [Concomitant]
     Active Substance: AMINO ACIDS, SOURCE UNSPECIFIED
     Indication: Parenteral nutrition
     Dosage: INTERMITTENT THERAPY.
     Route: 042
     Dates: start: 19981013
  70. VANCOMYCIN [Concomitant]
     Active Substance: VANCOMYCIN
     Indication: Infection
     Dosage: INTERMITTENT THERAPY
     Route: 042
     Dates: start: 19981111
  71. OFLOXACIN [Concomitant]
     Active Substance: OFLOXACIN
     Indication: Infection
     Route: 042
     Dates: end: 19981110
  72. ZOVIRAX [Concomitant]
     Active Substance: ACYCLOVIR
     Indication: Prophylaxis
     Route: 042
     Dates: end: 19981122

REACTIONS (2)
  - Toxic epidermal necrolysis [Fatal]
  - Graft versus host disease [Fatal]

NARRATIVE: CASE EVENT DATE: 19981121
